FAERS Safety Report 4941539-X (Version None)
Quarter: 2006Q1

REPORT INFORMATION
  Report Type: 
  Country: None (occurrence: None)
  Receive Date: 20060310
  Receipt Date: 20060310
  Transmission Date: 20060701
  Serious: Yes (Hospitalization)
  Sender: FDA-Public Use
  Company Number: None

PATIENT
  Age: 15 Year
  Sex: Female
  Weight: 80.9 kg

DRUGS (6)
  1. REMICADE [Suspect]
     Indication: COLITIS ULCERATIVE
     Dosage: 400 MG IV
     Route: 042
     Dates: start: 20060306
  2. 6MP [Concomitant]
  3. PREDNISONE [Concomitant]
  4. ASACOL [Concomitant]
  5. FLAGYL [Concomitant]
  6. PEPCID [Concomitant]

REACTIONS (3)
  - HERPES ZOSTER [None]
  - INFUSION RELATED REACTION [None]
  - RASH [None]
